FAERS Safety Report 5140217-4 (Version None)
Quarter: 2006Q4

REPORT INFORMATION
  Report Type: 
  Country: None (occurrence: None)
  Receive Date: 20061031
  Receipt Date: 20061025
  Transmission Date: 20070319
  Serious: Yes (Other)
  Sender: FDA-Public Use
  Company Number: US-GLAXOSMITHKLINE-A0625151A

PATIENT
  Age: 28 Year
  Sex: Male

DRUGS (3)
  1. NICODERM CQ [Suspect]
     Route: 062
     Dates: start: 20061018
  2. NICODERM CQ [Suspect]
     Route: 062
     Dates: start: 19970101
  3. ALBUTEROL [Concomitant]
     Indication: ASTHMA

REACTIONS (10)
  - AGGRESSION [None]
  - CRYING [None]
  - DRUG EFFECT DECREASED [None]
  - INSOMNIA [None]
  - IRRITABILITY [None]
  - MOOD SWINGS [None]
  - NAUSEA [None]
  - NICOTINE DEPENDENCE [None]
  - NIGHTMARE [None]
  - RESTLESSNESS [None]
